FAERS Safety Report 10074380 (Version 1)
Quarter: 2014Q2

REPORT INFORMATION
  Report Type: Spontaneous
  Country: FR (occurrence: FR)
  Receive Date: 20140411
  Receipt Date: 20140411
  Transmission Date: 20141212
  Serious: Yes (Other)
  Sender: FDA-Public Use
  Company Number: FR-GILEAD-2014-0099407

PATIENT
  Age: 45 Year
  Sex: Female

DRUGS (3)
  1. TRUVADA [Suspect]
     Indication: HIV INFECTION
     Dosage: UNK
     Route: 065
     Dates: start: 2009, end: 2012
  2. REYATAZ [Suspect]
     Indication: HIV INFECTION
     Route: 065
  3. NORVIR [Concomitant]

REACTIONS (2)
  - Nephrolithiasis [Unknown]
  - Fanconi syndrome acquired [Unknown]
